FAERS Safety Report 15429223 (Version 1)
Quarter: 2018Q3

REPORT INFORMATION
  Report Type: Spontaneous
  Country: US (occurrence: US)
  Receive Date: 20180919
  Receipt Date: 20180919
  Transmission Date: 20181010
  Serious: Yes (Death, Hospitalization, Disabling)
  Sender: FDA-Public Use
  Company Number: None

PATIENT
  Age: 76 Year
  Sex: Female
  Weight: 84.2 kg

DRUGS (1)
  1. CORTICOSTEROID NOS [Suspect]
     Active Substance: CORTICOSTEROID NOS
     Dates: start: 20180724

REACTIONS (8)
  - Muscular weakness [None]
  - Fall [None]
  - Hypoxia [None]
  - Decreased appetite [None]
  - Somnolence [None]
  - Adrenal insufficiency [None]
  - Dysstasia [None]
  - Hypovolaemic shock [None]

NARRATIVE: CASE EVENT DATE: 20180912
